FAERS Safety Report 11433438 (Version 2)
Quarter: 2015Q3

REPORT INFORMATION
  Report Type: Report from Study
  Country: AU (occurrence: AU)
  Receive Date: 20150831
  Receipt Date: 20150909
  Transmission Date: 20151125
  Serious: Yes (Other)
  Sender: FDA-Public Use
  Company Number: AU-ROCHE-1627506

PATIENT
  Sex: Female

DRUGS (1)
  1. ACTEMRA [Suspect]
     Active Substance: TOCILIZUMAB
     Indication: RHEUMATOID ARTHRITIS
     Dosage: FREQUENCY: 4/52 UNIT NOT REPORTED.
     Route: 042
     Dates: start: 20130723

REACTIONS (3)
  - Haemoglobin decreased [Recovered/Resolved]
  - Blood iron decreased [Recovered/Resolved]
  - Stool analysis abnormal [Unknown]
